FAERS Safety Report 9614083 (Version 2)
Quarter: 2013Q4

REPORT INFORMATION
  Report Type: Spontaneous
  Country: FR (occurrence: FR)
  Receive Date: 20131011
  Receipt Date: 20131127
  Transmission Date: 20140711
  Serious: Yes (Other)
  Sender: FDA-Public Use
  Company Number: FR-ACTELION-A-CH2013-89499

PATIENT
  Age: 12 Year
  Sex: Male
  Weight: 30 kg

DRUGS (5)
  1. ZAVESCA [Suspect]
     Indication: GAUCHER^S DISEASE
     Dosage: 400 MG, OD
     Route: 048
     Dates: end: 201310
  2. ZAVESCA [Suspect]
     Dosage: 300 MG, OD
     Route: 048
  3. DEPAKINE [Concomitant]
     Indication: EPILEPSY
     Dosage: UNK
  4. RIVOTRIL [Concomitant]
     Indication: EPILEPSY
     Dosage: UNK
  5. CEREZYME [Concomitant]
     Indication: GAUCHER^S DISEASE
     Dosage: UNK

REACTIONS (3)
  - Convulsion [Recovered/Resolved]
  - Diarrhoea [Recovered/Resolved]
  - Sleep disorder [Recovered/Resolved]
